FAERS Safety Report 5063708-3 (Version None)
Quarter: 2006Q3

REPORT INFORMATION
  Report Type: 
  Country: None (occurrence: None)
  Receive Date: 20060703
  Receipt Date: 20050808
  Transmission Date: 20061208
  Serious: No
  Sender: FDA-Public Use
  Company Number: 2005S1001735

PATIENT
  Age: 79 Year
  Sex: Male

DRUGS (14)
  1. CLOZAPINE [Suspect]
     Indication: DEMENTIA
     Dosage: SEE IMAGE
     Route: 048
     Dates: start: 20020404, end: 20050317
  2. CLOZAPINE [Suspect]
     Indication: HALLUCINATION
     Dosage: SEE IMAGE
     Route: 048
     Dates: start: 20020404, end: 20050317
  3. CLOZAPINE [Suspect]
     Indication: DEMENTIA
     Dosage: SEE IMAGE
     Route: 048
     Dates: start: 20050328, end: 20050425
  4. CLOZAPINE [Suspect]
     Indication: HALLUCINATION
     Dosage: SEE IMAGE
     Route: 048
     Dates: start: 20050328, end: 20050425
  5. CLOZAPINE [Suspect]
     Indication: DEMENTIA
     Dosage: SEE IMAGE
     Route: 048
     Dates: start: 20050505, end: 20050804
  6. CLOZAPINE [Suspect]
     Indication: HALLUCINATION
     Dosage: SEE IMAGE
     Route: 048
     Dates: start: 20050505, end: 20050804
  7. CLOZAPINE [Suspect]
     Indication: DEMENTIA
     Dosage: SEE IMAGE
     Route: 048
     Dates: start: 20050812
  8. CLOZAPINE [Suspect]
     Indication: HALLUCINATION
     Dosage: SEE IMAGE
     Route: 048
     Dates: start: 20050812
  9. MACROGOL [Concomitant]
  10. CARBIDOPA AND LEVODOPA [Concomitant]
  11. ROPINIROLE HCL [Concomitant]
  12. PROVIGIL [Concomitant]
  13. TENORMIN [Concomitant]
  14. PROSCAR [Concomitant]

REACTIONS (2)
  - GRANULOCYTOPENIA [None]
  - LEUKOPENIA [None]
